FAERS Safety Report 8330183-2 (Version None)
Quarter: 2012Q2

REPORT INFORMATION
  Report Type: 
  Country: None (occurrence: None)
  Receive Date: 20120502
  Receipt Date: 20120424
  Transmission Date: 20120825
  Serious: Yes (Other)
  Sender: FDA-Public Use
  Company Number: JP-VERTEX PHARMACEUTICALS INC.-AE-2012-006095

PATIENT
  Age: 68 Year
  Sex: Male

DRUGS (6)
  1. RIBAVIRIN [Concomitant]
     Indication: HEPATITIS C
     Route: 048
     Dates: start: 20120302, end: 20120311
  2. PEGINTERFERON ALFA-2B [Concomitant]
     Indication: HEPATITIS C
     Route: 051
     Dates: start: 20120302
  3. MINOPHAGEN C [Concomitant]
     Dates: start: 20110531
  4. URSO 250 [Concomitant]
     Route: 048
     Dates: start: 20000101
  5. RIBAVIRIN [Concomitant]
     Route: 048
     Dates: start: 20120312
  6. TELAVIC (TELAPREVIR) [Suspect]
     Indication: HEPATITIS C
     Route: 048
     Dates: start: 20120305

REACTIONS (2)
  - HYPERURICAEMIA [None]
  - BLOOD CREATININE INCREASED [None]
